FAERS Safety Report 11519973 (Version 1)
Quarter: 2015Q3

REPORT INFORMATION
  Report Type: Spontaneous
  Country: US (occurrence: US)
  Receive Date: 20150918
  Receipt Date: 20150918
  Transmission Date: 20151125
  Serious: No
  Sender: FDA-Public Use
  Company Number: US-RB-067971-14

PATIENT

DRUGS (1)
  1. MUCINEX MAXIMUM STRENGTH [Suspect]
     Active Substance: GUAIFENESIN
     Indication: PRODUCT USED FOR UNKNOWN INDICATION
     Dosage: 1200MG. PRODUCT LAST USED ON: 09/AUG/2014; DOSING: 1 TABLET BY MOUTH ONCE DAILY AS NEEDED.,QD
     Route: 048

REACTIONS (3)
  - Anxiety [Unknown]
  - Incorrect drug administration duration [Unknown]
  - Hypertension [Recovered/Resolved]
